FAERS Safety Report 11039339 (Version 1)
Quarter: 2015Q2

REPORT INFORMATION
  Report Type: Report from Study
  Country: CA (occurrence: CA)
  Receive Date: 20150416
  Receipt Date: 20150416
  Transmission Date: 20150821
  Serious: Yes (Hospitalization, Other)
  Sender: FDA-Public Use
  Company Number: CA-EXELIXIS-XL18415005351

PATIENT
  Age: 74 Year
  Sex: Female

DRUGS (2)
  1. XL184 [Suspect]
     Active Substance: CABOZANTINIB
     Dosage: 40 MG, QD
     Route: 048
     Dates: start: 20141208, end: 201501
  2. XL184 [Suspect]
     Active Substance: CABOZANTINIB
     Indication: ENDOMETRIAL STROMAL SARCOMA
     Dosage: 60 MG, QD
     Route: 048
     Dates: start: 20140911, end: 20141207

REACTIONS (9)
  - Nausea [Recovered/Resolved]
  - Diarrhoea [Recovered/Resolved]
  - Lipase increased [Unknown]
  - Platelet count decreased [Unknown]
  - Embolism [Unknown]
  - Anaemia [Unknown]
  - Skin infection [Unknown]
  - Hypophosphataemia [Recovered/Resolved]
  - Lymphoedema [Unknown]

NARRATIVE: CASE EVENT DATE: 20141202
